FAERS Safety Report 23103186 (Version 2)
Quarter: 2024Q1

REPORT INFORMATION
  Report Type: Spontaneous
  Country: DE (occurrence: DE)
  Receive Date: 20231025
  Receipt Date: 20240124
  Transmission Date: 20240409
  Serious: Yes (Death, Other)
  Sender: FDA-Public Use
  Company Number: DE-SA-2016SA225991

PATIENT
  Age: 73 Year
  Sex: Male

DRUGS (4)
  1. OXALIPLATIN [Suspect]
     Active Substance: OXALIPLATIN
     Indication: Composite lymphoma
     Dosage: UNK UNK,QCY
     Route: 065
  2. GEMCITABINE [Suspect]
     Active Substance: GEMCITABINE
     Indication: Composite lymphoma
     Dosage: UNK UNK,QCY
     Route: 065
  3. BENDAMUSTINE [Suspect]
     Active Substance: BENDAMUSTINE
     Indication: Lymphoma
     Dosage: UNK UNK,QCY
     Route: 065
  4. BENDAMUSTINE [Suspect]
     Active Substance: BENDAMUSTINE
     Dosage: UNK UNK,QCY
     Route: 065
     Dates: start: 201506, end: 201507

REACTIONS (1)
  - Leukopenia [Fatal]
